FAERS Safety Report 16335960 (Version 1)
Quarter: 2019Q2

REPORT INFORMATION
  Report Type: Spontaneous
  Country: AR (occurrence: AR)
  Receive Date: 20190521
  Receipt Date: 20190521
  Transmission Date: 20190711
  Serious: Yes (Other)
  Sender: FDA-Public Use
  Company Number: AR-ROCHE-2320767

PATIENT
  Age: 68 Year
  Sex: Male
  Weight: 74 kg

DRUGS (9)
  1. RITUXIMAB. [Suspect]
     Active Substance: RITUXIMAB
     Indication: NON-HODGKIN^S LYMPHOMA
     Dosage: SIX CYCLES
     Route: 065
     Dates: start: 20181019, end: 20190206
  2. DOXORUBICIN [Concomitant]
     Active Substance: DOXORUBICIN
     Dosage: SIX CYCLES
     Route: 065
     Dates: start: 20181019, end: 20190201
  3. CARBOPLATIN. [Concomitant]
     Active Substance: CARBOPLATIN
     Dosage: TWO CYCLES
     Route: 065
     Dates: start: 20190327, end: 20190423
  4. PREDNISOLONE. [Concomitant]
     Active Substance: PREDNISOLONE
     Dosage: SIX CYCLES
     Route: 065
     Dates: start: 20181019, end: 20190201
  5. ETOPOSIDE. [Concomitant]
     Active Substance: ETOPOSIDE
     Dosage: TWO CYCLES
     Route: 065
     Dates: start: 20190327, end: 20190423
  6. RITUXIMAB. [Suspect]
     Active Substance: RITUXIMAB
     Route: 065
     Dates: start: 20190327, end: 20190423
  7. CYCLOPHOSPHAMIDE. [Concomitant]
     Active Substance: CYCLOPHOSPHAMIDE
     Dosage: SIX CYCLES
     Route: 065
     Dates: start: 20181019, end: 20190201
  8. VINCRISTINE [Concomitant]
     Active Substance: VINCRISTINE
     Dosage: SIX CYCLES
     Route: 065
     Dates: start: 20181019, end: 20190201
  9. IFOSFAMIDE. [Concomitant]
     Active Substance: IFOSFAMIDE
     Dosage: TWO CYCLES
     Route: 065
     Dates: start: 20190327, end: 20190423

REACTIONS (2)
  - Therapy non-responder [Unknown]
  - Cytopenia [Unknown]
